FAERS Safety Report 9049997 (Version 1)
Quarter: 2013Q1

REPORT INFORMATION
  Report Type: Spontaneous
  Country: US (occurrence: US)
  Receive Date: 20130205
  Receipt Date: 20130205
  Transmission Date: 20140127
  Serious: No
  Sender: FDA-Public Use
  Company Number: US-GLAXOSMITHKLINE-A0950554A

PATIENT
  Age: 34 Year
  Sex: Female
  Weight: 72 kg

DRUGS (2)
  1. ARIXTRA [Suspect]
     Indication: HYPERCOAGULATION
     Dosage: 2.5MG PER DAY
     Route: 058
     Dates: start: 20110811
  2. PRENATAL VITAMIN [Concomitant]
     Indication: PREGNANCY

REACTIONS (2)
  - Exposure during pregnancy [Unknown]
  - Live birth [Unknown]
